FAERS Safety Report 15340591 (Version 6)
Quarter: 2019Q2

REPORT INFORMATION
  Report Type: Report from Study
  Country: US (occurrence: US)
  Receive Date: 20180831
  Receipt Date: 20190530
  Transmission Date: 20190711
  Serious: Yes (Death, Hospitalization)
  Sender: FDA-Public Use
  Company Number: US-ACTELION-A-US2016-135808

PATIENT
  Age: 48 Year
  Sex: Female
  Weight: 104.76 kg

DRUGS (6)
  1. UPTRAVI [Suspect]
     Active Substance: SELEXIPAG
     Indication: PULMONARY ARTERIAL HYPERTENSION
     Dosage: 600 MCG, BID
     Route: 048
     Dates: start: 20160328
  2. UPTRAVI [Suspect]
     Active Substance: SELEXIPAG
     Dosage: 200 MCG, BID
     Route: 048
     Dates: start: 20160328
  3. SILDENAFIL. [Concomitant]
     Active Substance: SILDENAFIL
     Dosage: 60 MG, UNK
  4. OPSUMIT [Suspect]
     Active Substance: MACITENTAN
     Indication: PULMONARY ARTERIAL HYPERTENSION
     Dosage: 10 MG, QD
     Route: 048
     Dates: start: 20150710, end: 20180805
  5. UPTRAVI [Suspect]
     Active Substance: SELEXIPAG
     Dosage: 800 MCG, BID
     Route: 048
     Dates: start: 20160328
  6. UPTRAVI [Suspect]
     Active Substance: SELEXIPAG
     Dosage: 1000 MCG, UNK
     Route: 048
     Dates: start: 20160328

REACTIONS (22)
  - Pulmonary hypertension [Fatal]
  - Disease progression [Fatal]
  - Respiratory failure [Unknown]
  - Right ventricular failure [Fatal]
  - Aspartate aminotransferase increased [Unknown]
  - Arthralgia [Unknown]
  - Weight increased [Recovered/Resolved]
  - Electrolyte imbalance [Unknown]
  - Intra-abdominal fluid collection [Unknown]
  - Condition aggravated [Unknown]
  - Blood bilirubin increased [Unknown]
  - Headache [Unknown]
  - Fluid overload [Not Recovered/Not Resolved]
  - Dyspnoea exertional [Recovered/Resolved]
  - Cardiac arrest [Unknown]
  - Alanine aminotransferase increased [Unknown]
  - Back pain [Unknown]
  - Myalgia [Unknown]
  - Nausea [Unknown]
  - Pain in jaw [Unknown]
  - Abdominal pain [Unknown]
  - Vomiting [Unknown]

NARRATIVE: CASE EVENT DATE: 20180319
